FAERS Safety Report 7741521-3 (Version None)
Quarter: 2011Q3

REPORT INFORMATION
  Report Type: 
  Country: None (occurrence: None)
  Receive Date: 20110909
  Receipt Date: 20110831
  Transmission Date: 20111222
  Serious: Yes (Other)
  Sender: FDA-Public Use
  Company Number: US-RB-014937-10

PATIENT
  Age: 38 Year
  Sex: Male

DRUGS (1)
  1. SUBOXONE [Suspect]
     Indication: PRODUCT USED FOR UNKNOWN INDICATION
     Dosage: DOSING DETAILS UNKNOWN
     Route: 065

REACTIONS (6)
  - DIARRHOEA [None]
  - VOMITING [None]
  - MUSCLE SPASMS [None]
  - MALAISE [None]
  - DRUG WITHDRAWAL SYNDROME [None]
  - CONVULSION [None]
